FAERS Safety Report 6137969-3 (Version None)
Quarter: 2009Q1

REPORT INFORMATION
  Report Type: 
  Country: None (occurrence: None)
  Receive Date: 20090331
  Receipt Date: 20090324
  Transmission Date: 20090719
  Serious: Yes (Other)
  Sender: FDA-Public Use
  Company Number: FR-PFIZER INC-2009189849

PATIENT

DRUGS (2)
  1. CELEBREX [Suspect]
     Indication: HIP ARTHROPLASTY
     Dosage: UNK
     Dates: start: 20090101, end: 20090101
  2. CIRCADIN [Concomitant]
     Indication: INSOMNIA
     Dosage: UNK

REACTIONS (3)
  - CONFUSIONAL STATE [None]
  - MEMORY IMPAIRMENT [None]
  - SPEECH DISORDER [None]
